FAERS Safety Report 6122889-0 (Version None)
Quarter: 2009Q1

REPORT INFORMATION
  Report Type: 
  Country: None (occurrence: None)
  Receive Date: 20090318
  Receipt Date: 20080721
  Transmission Date: 20090719
  Serious: Yes (Hospitalization)
  Sender: FDA-Public Use
  Company Number: US-AMGEN-US296070

PATIENT
  Sex: Female

DRUGS (13)
  1. NEULASTA [Suspect]
     Indication: CHEMOTHERAPY
     Route: 058
     Dates: start: 20060830
  2. PACLITAXEL [Suspect]
     Route: 040
     Dates: start: 20061024, end: 20061206
  3. BEVACIZUMAB [Suspect]
     Route: 042
     Dates: start: 20060829, end: 20061205
  4. PHENERGAN [Concomitant]
     Route: 048
     Dates: start: 20061025
  5. ADRIAMYCIN RDF [Concomitant]
     Route: 042
     Dates: start: 20060829, end: 20061006
  6. CYTOXAN [Concomitant]
     Route: 042
     Dates: start: 20060829, end: 20061006
  7. ANZEMET [Concomitant]
  8. DILAUDID [Concomitant]
  9. BACTRIM DS [Concomitant]
  10. ATIVAN [Concomitant]
     Dates: start: 20061025
  11. AMBIEN [Concomitant]
     Route: 048
     Dates: start: 20060913
  12. PERCOCET [Concomitant]
     Route: 048
     Dates: start: 20060701
  13. COMPAZINE [Concomitant]
     Route: 048
     Dates: start: 20060824

REACTIONS (1)
  - ARTHRALGIA [None]
